FAERS Safety Report 19627504 (Version 1)
Quarter: 2021Q3

REPORT INFORMATION
  Report Type: Report from Study
  Country: CA (occurrence: CA)
  Receive Date: 20210729
  Receipt Date: 20210729
  Transmission Date: 20211014
  Serious: Yes (Other)
  Sender: FDA-Public Use
  Company Number: CA-ACCORD-233625

PATIENT
  Sex: Female

DRUGS (5)
  1. DOVONEX [Concomitant]
     Active Substance: CALCIPOTRIENE
     Indication: PRODUCT USED FOR UNKNOWN INDICATION
  2. CALCIPOTRIOL AND BETAMETHASONE [Concomitant]
     Active Substance: BETAMETHASONE\CALCIPOTRIENE
     Indication: PRODUCT USED FOR UNKNOWN INDICATION
  3. OTEZLA [Concomitant]
     Active Substance: APREMILAST
     Indication: PRODUCT USED FOR UNKNOWN INDICATION
  4. SORIATANE [Concomitant]
     Active Substance: ACITRETIN
     Indication: PRODUCT USED FOR UNKNOWN INDICATION
  5. METHOTREXATE. [Suspect]
     Active Substance: METHOTREXATE
     Indication: PSORIASIS

REACTIONS (10)
  - Chest X-ray abnormal [Unknown]
  - Quality of life decreased [Unknown]
  - Pain of skin [Unknown]
  - Pruritus [Unknown]
  - Haemorrhage [Unknown]
  - Burning sensation [Unknown]
  - Gait disturbance [Unknown]
  - Pain [Unknown]
  - Pain in extremity [Unknown]
  - Condition aggravated [Unknown]
